FAERS Safety Report 19539703 (Version 2)
Quarter: 2021Q3

REPORT INFORMATION
  Report Type: Report from Study
  Country: US (occurrence: US)
  Receive Date: 20210713
  Receipt Date: 20210903
  Transmission Date: 20211014
  Serious: Yes (Other)
  Sender: FDA-Public Use
  Company Number: US-GILEAD-2021-0540179

PATIENT
  Sex: Female

DRUGS (2)
  1. COVID?19 VACCINE [Concomitant]
     Dosage: 1 DOSAGE FORM; 3 TOTAL DOSES
     Dates: end: 2021
  2. AXICABTAGENE CILOLEUCEL [Suspect]
     Active Substance: AXICABTAGENE CILOLEUCEL
     Indication: NON-HODGKIN^S LYMPHOMA
     Dosage: UNK
     Route: 042
     Dates: start: 20180101, end: 201801

REACTIONS (8)
  - Hunger [Unknown]
  - Seizure [Unknown]
  - Locked-in syndrome [Unknown]
  - Heart rate decreased [Unknown]
  - Confusional state [Unknown]
  - Anger [Unknown]
  - Malaise [Not Recovered/Not Resolved]
  - Immune system disorder [Unknown]
